FAERS Safety Report 23726520 (Version 1)
Quarter: 2024Q2

REPORT INFORMATION
  Report Type: Other
  Country: AM (occurrence: AM)
  Receive Date: 20240410
  Receipt Date: 20240410
  Transmission Date: 20240715
  Serious: Yes (Other)
  Sender: FDA-Public Use
  Company Number: AM-Appco Pharma LLC-2155407

PATIENT
  Age: 30 Year
  Sex: Female

DRUGS (1)
  1. HYDROXYCHLOROQUINE SULFATE [Suspect]
     Active Substance: HYDROXYCHLOROQUINE SULFATE
     Indication: Acquired haemophilia
     Route: 065

REACTIONS (1)
  - Drug ineffective [Unknown]
